FAERS Safety Report 15027929 (Version 1)
Quarter: 2018Q2

REPORT INFORMATION
  Report Type: Report from Study
  Country: US (occurrence: US)
  Receive Date: 20180619
  Receipt Date: 20180619
  Transmission Date: 20180711
  Serious: Yes (Death)
  Sender: FDA-Public Use
  Company Number: US-TAIHO ONCOLOGY INC-EU-2018-00397

PATIENT
  Age: 71 Year
  Sex: Male

DRUGS (1)
  1. LONSURF [Suspect]
     Active Substance: TIPIRACIL HYDROCHLORIDE\TRIFLURIDINE
     Dosage: DOSAGE AND FREQUENCY UNKNOWN
     Route: 048
     Dates: start: 20180319

REACTIONS (6)
  - Dysstasia [Unknown]
  - Death [Fatal]
  - Blood magnesium decreased [Unknown]
  - Asthenia [Not Recovered/Not Resolved]
  - Drug dose omission [Unknown]
  - Palpitations [Unknown]

NARRATIVE: CASE EVENT DATE: 2018
